FAERS Safety Report 8127345-6 (Version None)
Quarter: 2012Q1

REPORT INFORMATION
  Report Type: 
  Country: None (occurrence: None)
  Receive Date: 20120210
  Receipt Date: 20120203
  Transmission Date: 20120608
  Serious: Yes (Other)
  Sender: FDA-Public Use
  Company Number: IT-BRISTOL-MYERS SQUIBB COMPANY-15998701

PATIENT
  Age: 65 Year
  Sex: Male

DRUGS (1)
  1. IPILIMUMAB [Suspect]
     Indication: MALIGNANT MELANOMA
     Dosage: 3 MG/KG VIAL #391105 212631
     Route: 042
     Dates: start: 20110809, end: 20110809

REACTIONS (3)
  - PULMONARY OEDEMA [None]
  - BLOOD PRESSURE INCREASED [None]
  - COR PULMONALE [None]
